FAERS Safety Report 9457210 (Version 2)
Quarter: 2014Q4

REPORT INFORMATION
  Report Type: Spontaneous
  Country: US (occurrence: US)
  Receive Date: 20130814
  Receipt Date: 20141118
  Transmission Date: 20150529
  Serious: Yes (Other)
  Sender: FDA-Public Use
  Company Number: US-RANBAXY-2013US-72203

PATIENT
  Age: 77 Year
  Sex: Male

DRUGS (5)
  1. TRIAMCINOLONE [Suspect]
     Active Substance: TRIAMCINOLONE
     Indication: CYSTOID MACULAR OEDEMA
     Dosage: UNK
     Route: 031
     Dates: start: 201202
  2. PREDNISOLONE ACETATE. [Concomitant]
     Active Substance: PREDNISOLONE ACETATE
     Indication: IRIDOCYCLITIS
     Route: 065
  3. BEVACIZUMAB [Suspect]
     Active Substance: BEVACIZUMAB
     Indication: CYSTOID MACULAR OEDEMA
     Dosage: UNK
     Route: 031
     Dates: start: 201202
  4. TRIAMCINOLONE [Suspect]
     Active Substance: TRIAMCINOLONE
     Indication: RETINOPATHY
  5. BEVACIZUMAB [Suspect]
     Active Substance: BEVACIZUMAB
     Indication: RETINOPATHY

REACTIONS (3)
  - Product contamination microbial [Unknown]
  - Mycotic endophthalmitis [Unknown]
  - Off label use [Unknown]
